FAERS Safety Report 20120087 (Version 2)
Quarter: 2022Q3

REPORT INFORMATION
  Report Type: Spontaneous
  Country: US (occurrence: US)
  Receive Date: 20211126
  Receipt Date: 20220703
  Transmission Date: 20221027
  Serious: No
  Sender: FDA-Public Use
  Company Number: US-GILEAD-2021-0557213

PATIENT
  Age: 63 Year
  Sex: Male
  Weight: 62.585 kg

DRUGS (11)
  1. ATRIPLA [Suspect]
     Active Substance: EFAVIRENZ\EMTRICITABINE\TENOFOVIR DISOPROXIL FUMARATE
     Indication: HIV infection
     Dosage: UNK
     Route: 048
     Dates: start: 20091125, end: 201804
  2. ODEFSEY [Concomitant]
     Active Substance: EMTRICITABINE\RILPIVIRINE HYDROCHLORIDE\TENOFOVIR ALAFENAMIDE FUMARATE
  3. ENSURE COMPLETE [Concomitant]
  4. CYCLOBENZAPRINE [Concomitant]
     Active Substance: CYCLOBENZAPRINE
  5. NAPROXEN [Concomitant]
     Active Substance: NAPROXEN
  6. VITAMIN D NOS [Concomitant]
     Active Substance: VITAMIN D NOS
  7. SILDENAFIL [Concomitant]
     Active Substance: SILDENAFIL
  8. MENTHOL [Concomitant]
     Active Substance: MENTHOL
  9. ROSUVASTATIN [Concomitant]
     Active Substance: ROSUVASTATIN
  10. RIBOFLAVIN [Concomitant]
     Active Substance: RIBOFLAVIN
  11. ASPIRIN [Concomitant]
     Active Substance: ASPIRIN

REACTIONS (11)
  - Bone demineralisation [Unknown]
  - Osteopenia [Not Recovered/Not Resolved]
  - Ankle fracture [Unknown]
  - Emotional distress [Not Recovered/Not Resolved]
  - Fine motor skill dysfunction [Unknown]
  - Anhedonia [Not Recovered/Not Resolved]
  - Arthralgia [Unknown]
  - Asthenia [Unknown]
  - Coordination abnormal [Unknown]
  - Anxiety [Not Recovered/Not Resolved]
  - Pain [Not Recovered/Not Resolved]

NARRATIVE: CASE EVENT DATE: 20170101
